FAERS Safety Report 5249355-9 (Version None)
Quarter: 2007Q1

REPORT INFORMATION
  Report Type: 
  Country: None (occurrence: None)
  Receive Date: 20070228
  Receipt Date: 20060816
  Transmission Date: 20070707
  Serious: Yes (Other)
  Sender: FDA-Public Use
  Company Number: US-GLAXOSMITHKLINE-A0616951A

PATIENT
  Age: 79 Year
  Sex: Female

DRUGS (5)
  1. VALTREX [Suspect]
     Dosage: 1000MG TWICE PER DAY
     Route: 048
     Dates: start: 20060804, end: 20060806
  2. COUMADIN [Concomitant]
  3. DIOVAN [Concomitant]
  4. HYDROCHLOROTHIAZIDE [Concomitant]
  5. TOPROL-XL [Concomitant]

REACTIONS (4)
  - ANOREXIA [None]
  - BLOOD BILIRUBIN INCREASED [None]
  - HYPERSOMNIA [None]
  - LETHARGY [None]
